FAERS Safety Report 4284476-9 (Version None)
Quarter: 2004Q1

REPORT INFORMATION
  Report Type: 
  Country: None (occurrence: None)
  Receive Date: 20040130
  Receipt Date: 20040112
  Transmission Date: 20041129
  Serious: Yes (Hospitalization, Other)
  Sender: FDA-Public Use
  Company Number: USA031255241

PATIENT
  Age: 70 Year
  Sex: Female
  Weight: 96 kg

DRUGS (1)
  1. HUMULIN 70/30 [Suspect]
     Indication: DIABETES MELLITUS NON-INSULIN-DEPENDENT
     Dosage: 42 U/DAY
     Dates: start: 19940101

REACTIONS (1)
  - CEREBROVASCULAR ACCIDENT [None]
